FAERS Safety Report 5726775-7 (Version None)
Quarter: 2008Q2

REPORT INFORMATION
  Report Type: 
  Country: None (occurrence: None)
  Receive Date: 20080502
  Receipt Date: 20080429
  Transmission Date: 20081010
  Serious: Yes (Other)
  Sender: FDA-Public Use
  Company Number: MX-BRISTOL-MYERS SQUIBB COMPANY-14086151

PATIENT
  Age: 56 Year
  Sex: Female

DRUGS (3)
  1. ABATACEPT [Suspect]
     Indication: RHEUMATOID ARTHRITIS
     Dosage: THERAPY INTRUPTED ON 23JAN08.
     Route: 042
     Dates: start: 20030521, end: 20080123
  2. METHOTREXATE [Concomitant]
     Dates: start: 20030514
  3. DICLOFENAC [Concomitant]
     Dates: start: 20030514

REACTIONS (1)
  - BREAST CANCER [None]
